FAERS Safety Report 9058821 (Version 1)
Quarter: 2013Q1

REPORT INFORMATION
  Report Type: Report from Study
  Country: US (occurrence: US)
  Receive Date: 20130204
  Receipt Date: 20130204
  Transmission Date: 20140127
  Serious: Yes (Hospitalization, Other)
  Sender: FDA-Public Use
  Company Number: US-ACTELION-A-US2013-78356

PATIENT
  Age: 52 Year
  Sex: Female

DRUGS (2)
  1. TRACLEER [Suspect]
     Indication: PULMONARY ARTERIAL HYPERTENSION
     Route: 048
  2. COUMADIN [Concomitant]

REACTIONS (9)
  - Renal failure chronic [Unknown]
  - Disease complication [Unknown]
  - Cardiac failure congestive [Unknown]
  - Oedema peripheral [Unknown]
  - Pulmonary arterial hypertension [Unknown]
  - Drug ineffective [Unknown]
  - Feeling abnormal [Unknown]
  - Weight increased [Unknown]
  - Swelling face [Unknown]
